FAERS Safety Report 7238557-8 (Version None)
Quarter: 2011Q1

REPORT INFORMATION
  Report Type: 
  Country: None (occurrence: None)
  Receive Date: 20110121
  Receipt Date: 20110114
  Transmission Date: 20110831
  Serious: Yes (Hospitalization, Other)
  Sender: FDA-Public Use
  Company Number: US-JNJFOC-20110102415

PATIENT
  Sex: Male
  Weight: 72.58 kg

DRUGS (2)
  1. LEVAQUIN [Suspect]
     Indication: PYREXIA
     Route: 048
  2. AMINOCAPROIC ACID [Concomitant]
     Indication: HAEMORRHAGE
     Route: 048

REACTIONS (2)
  - HAEMORRHOIDAL HAEMORRHAGE [None]
  - DIARRHOEA [None]
